FAERS Safety Report 5149474-1 (Version None)
Quarter: 2006Q4

REPORT INFORMATION
  Report Type: 
  Country: None (occurrence: None)
  Receive Date: 20061113
  Receipt Date: 20061011
  Transmission Date: 20070319
  Serious: Yes (Hospitalization)
  Sender: FDA-Public Use
  Company Number: PHBS2006JP16023

PATIENT
  Age: 50 Year
  Sex: Male

DRUGS (4)
  1. PREDNISOLONE [Suspect]
     Indication: COLITIS ULCERATIVE
     Dosage: UNK, UNK
     Route: 042
     Dates: start: 20040901
  2. TPN [Concomitant]
     Dates: start: 20040901
  3. METHYLPREDNISOLONE [Suspect]
     Indication: COLITIS ULCERATIVE
  4. NEORAL [Suspect]
     Indication: COLITIS ULCERATIVE
     Route: 065
     Dates: start: 20050101

REACTIONS (9)
  - BLOOD ALBUMIN DECREASED [None]
  - COLECTOMY TOTAL [None]
  - COLITIS ULCERATIVE [None]
  - COLOSTOMY [None]
  - ILEOSTOMY [None]
  - LIFE SUPPORT [None]
  - MALNUTRITION [None]
  - MEGACOLON [None]
  - PNEUMOCYSTIS JIROVECI PNEUMONIA [None]
